FAERS Safety Report 9137129 (Version 1)
Quarter: 2013Q1

REPORT INFORMATION
  Report Type: Spontaneous
  Country: US (occurrence: US)
  Receive Date: 20130219
  Receipt Date: 20130219
  Transmission Date: 20140127
  Serious: No
  Sender: FDA-Public Use
  Company Number: US-BRISTOL-MYERS SQUIBB COMPANY-16807604

PATIENT
  Age: 51 Year
  Sex: Female
  Weight: 95.24 kg

DRUGS (10)
  1. ORENCIA [Suspect]
     Indication: RHEUMATOID ARTHRITIS
     Dosage: INTER 01-JUN-2012?RESTART 15-JUN-2012
     Route: 058
     Dates: start: 20090401
  2. METHOTREXATE [Suspect]
  3. ALLEGRA-D [Concomitant]
  4. CALCIUM [Concomitant]
  5. FOLIC ACID [Concomitant]
  6. L-LYSINE [Concomitant]
  7. PLAQUENIL [Concomitant]
  8. PREMARIN [Concomitant]
  9. SINGULAIR [Concomitant]
  10. VALTREX [Concomitant]

REACTIONS (1)
  - Upper respiratory tract infection [Recovered/Resolved]
